FAERS Safety Report 14134787 (Version 1)
Quarter: 2017Q4

REPORT INFORMATION
  Report Type: Spontaneous
  Country: US (occurrence: US)
  Receive Date: 20171027
  Receipt Date: 20171027
  Transmission Date: 20180321
  Serious: Yes (Other)
  Sender: FDA-Public Use
  Company Number: US-ALLERGAN-1760828US

PATIENT
  Age: 54 Year
  Sex: Female

DRUGS (5)
  1. LINZESS [Suspect]
     Active Substance: LINACLOTIDE
     Dosage: 290 ?G, QPM
     Route: 048
     Dates: start: 201707, end: 20171018
  2. ATENOLOL. [Concomitant]
     Active Substance: ATENOLOL
     Indication: TACHYCARDIA
     Dosage: 5 MG, QAM
     Route: 048
  3. LINZESS [Suspect]
     Active Substance: LINACLOTIDE
     Indication: IRRITABLE BOWEL SYNDROME
     Dosage: 145 ?G, UNK
     Route: 048
     Dates: start: 201701, end: 201703
  4. TRANZINE [Concomitant]
     Active Substance: CHLORPROMAZINE HYDROCHLORIDE
     Indication: ANXIETY
     Dosage: 7.5 MG, TID
     Route: 048
     Dates: start: 1995
  5. SYNTHROID [Concomitant]
     Active Substance: LEVOTHYROXINE SODIUM
     Indication: THYROID DISORDER
     Dosage: 75 ?G, UNK
     Route: 048

REACTIONS (11)
  - Gastric ulcer [Recovered/Resolved]
  - Suicidal ideation [Recovered/Resolved]
  - Inappropriate schedule of drug administration [Unknown]
  - Fatigue [Recovered/Resolved]
  - Abdominal distension [Recovering/Resolving]
  - Mood swings [Recovered/Resolved]
  - Off label use [Unknown]
  - Thyroiditis [Recovered/Resolved]
  - Nervousness [Recovered/Resolved]
  - Weight increased [Recovering/Resolving]
  - Crying [Recovered/Resolved]

NARRATIVE: CASE EVENT DATE: 201701
